FAERS Safety Report 9817800 (Version 3)
Quarter: 2015Q4

REPORT INFORMATION
  Report Type: Report from Study
  Country: US (occurrence: US)
  Receive Date: 20140115
  Receipt Date: 20151019
  Transmission Date: 20160305
  Serious: Yes (Hospitalization)
  Sender: FDA-Public Use
  Company Number: US-ROCHE-1331004

PATIENT
  Age: 44 Year
  Sex: Male
  Weight: 81.72 kg

DRUGS (2)
  1. VISMODEGIB [Suspect]
     Active Substance: VISMODEGIB
     Indication: BASAL CELL CARCINOMA
     Dosage: RESTARTED ON AN UNSPECIFIED DATE
     Route: 048
     Dates: start: 20130128, end: 20130612
  2. LORTAB (UNITED STATES) [Concomitant]
     Indication: BACK PAIN
     Route: 048

REACTIONS (1)
  - Back pain [Recovered/Resolved]

NARRATIVE: CASE EVENT DATE: 20130325
